FAERS Safety Report 9514050 (Version 1)
Quarter: 2013Q3

REPORT INFORMATION
  Report Type: Spontaneous
  Country: PH (occurrence: PH)
  Receive Date: 20130910
  Receipt Date: 20130910
  Transmission Date: 20140515
  Serious: Yes (Hospitalization)
  Sender: FDA-Public Use
  Company Number: PH-MERCK-1309PHL002832

PATIENT
  Age: 83 Year
  Sex: Female

DRUGS (1)
  1. JANUVIA [Suspect]
     Indication: BLOOD GLUCOSE
     Dosage: HALF TABLET ONCE A DAY
     Route: 048

REACTIONS (3)
  - Pneumonia [Unknown]
  - Wrong technique in drug usage process [Unknown]
  - Underdose [Unknown]
